FAERS Safety Report 6450410-6 (Version None)
Quarter: 2009Q4

REPORT INFORMATION
  Report Type: 
  Country: None (occurrence: None)
  Receive Date: 20091123
  Receipt Date: 20091112
  Transmission Date: 20100525
  Serious: Yes (Hospitalization)
  Sender: FDA-Public Use
  Company Number: CO-BRISTOL-MYERS SQUIBB COMPANY-14855902

PATIENT
  Age: 79 Year
  Sex: Female
  Weight: 77 kg

DRUGS (3)
  1. CETUXIMAB [Suspect]
     Indication: NON-SMALL CELL LUNG CANCER
     Dosage: RECENT INF:03NOV09
     Route: 042
     Dates: start: 20090826
  2. PACLITAXEL [Suspect]
     Indication: NON-SMALL CELL LUNG CANCER
     Dosage: RECENT INF:28OCT09,63D DAY 1 OF 21DAY CYCLE
     Route: 042
     Dates: start: 20090826
  3. CARBOPLATIN [Suspect]
     Indication: NON-SMALL CELL LUNG CANCER
     Dosage: 1 DF=6AUC RECENT INF:28OCT09,63D DAY 1 OF 21 DAY CYCLE
     Route: 042
     Dates: start: 20090826

REACTIONS (1)
  - FEBRILE NEUTROPENIA [None]
